FAERS Safety Report 21772644 (Version 2)
Quarter: 2022Q4

REPORT INFORMATION
  Report Type: Report from Study
  Country: US (occurrence: US)
  Receive Date: 20221223
  Receipt Date: 20221226
  Transmission Date: 20230113
  Serious: No
  Sender: FDA-Public Use
  Company Number: US-ABBVIE-4241510

PATIENT
  Sex: Female

DRUGS (1)
  1. HUMIRA [Suspect]
     Active Substance: ADALIMUMAB
     Indication: Rheumatoid arthritis
     Dosage: THE START DATE OF EVENT TROUBLE WITH LEFT KNEE, THROBBING LEFT KNEE PAIN, PAINFUL IN WALKING AND ...
     Route: 058
     Dates: start: 2022

REACTIONS (4)
  - Joint swelling [Unknown]
  - Arthralgia [Unknown]
  - Arthropathy [Not Recovered/Not Resolved]
  - Pain [Unknown]
